FAERS Safety Report 5733529-4 (Version None)
Quarter: 2008Q2

REPORT INFORMATION
  Report Type: 
  Country: None (occurrence: None)
  Receive Date: 20080509
  Receipt Date: 20080409
  Transmission Date: 20081010
  Serious: Yes (Other)
  Sender: FDA-Public Use
  Company Number: JP-PFIZER INC-2008032191

PATIENT
  Age: 59 Year
  Sex: Male

DRUGS (6)
  1. SOLU-MEDROL [Suspect]
     Indication: STATUS ASTHMATICUS
     Dosage: DAILY DOSE:1250MG
     Route: 042
  2. METHYLPREDNISOLONE SODIUM SUCCINATE [Suspect]
     Indication: STATUS ASTHMATICUS
     Route: 042
  3. CERCINE [Suspect]
     Indication: HYPOTONIA
     Dosage: DAILY DOSE:20MG
     Route: 042
  4. MIOBLOCK [Suspect]
     Indication: HYPOTONIA
     Dosage: DAILY DOSE:4MG
     Route: 042
  5. RINDERON [Suspect]
     Indication: STATUS ASTHMATICUS
     Dosage: DAILY DOSE:480MG
     Route: 042
  6. MUSCULAX [Suspect]
     Indication: STATUS ASTHMATICUS
     Dosage: DAILY DOSE:360MG
     Route: 042

REACTIONS (3)
  - DRUG INEFFECTIVE [None]
  - MYOPATHY [None]
  - QUADRIPLEGIA [None]
